FAERS Safety Report 7706822-3 (Version None)
Quarter: 2011Q3

REPORT INFORMATION
  Report Type: 
  Country: None (occurrence: None)
  Receive Date: 20110824
  Receipt Date: 20110819
  Transmission Date: 20111222
  Serious: Yes (Death)
  Sender: FDA-Public Use
  Company Number: FR-PURDUE-GBR-2011-0008706

PATIENT
  Sex: Male
  Weight: 67 kg

DRUGS (6)
  1. OXYCODONE HYDROCHLORIDE [Suspect]
     Indication: BONE PAIN
     Dosage: UNK
     Route: 048
     Dates: start: 20101010
  2. METHOTREXATE [Concomitant]
     Dosage: 18 TABLET, UNK
  3. OXYCONTIN [Suspect]
     Indication: BONE PAIN
     Dosage: UNK
     Route: 048
     Dates: start: 20101010
  4. MORPHINE SULFATE [Suspect]
     Indication: PRODUCT USED FOR UNKNOWN INDICATION
     Dosage: UNK
     Route: 048
     Dates: start: 20101010
  5. MERCAPTOPURINE [Concomitant]
     Dosage: 2 TABLET, EVERY 15 DAYS
     Dates: start: 20100329
  6. PREDNISONE [Concomitant]
     Dosage: 40 MG/M2, UNK
     Dates: start: 20101004, end: 20101008

REACTIONS (2)
  - INTENTIONAL DRUG MISUSE [None]
  - TOXICITY TO VARIOUS AGENTS [None]
